FAERS Safety Report 6348187-8 (Version None)
Quarter: 2009Q3

REPORT INFORMATION
  Report Type: 
  Country: None (occurrence: None)
  Receive Date: 20090908
  Receipt Date: 20090825
  Transmission Date: 20100115
  Serious: Yes (Life-Threatening)
  Sender: FDA-Public Use
  Company Number: 2009AP003462

PATIENT
  Age: 46 Year
  Sex: Male

DRUGS (8)
  1. ALENDRONATE SODIUM [Suspect]
     Indication: PROPHYLAXIS
     Dosage: 70 MG; PO
     Route: 048
     Dates: start: 20080720
  2. ALENDRONATE SODIUM [Suspect]
     Indication: PROPHYLAXIS
     Dosage: 70 MG; PO
     Route: 048
     Dates: start: 20080801
  3. CALCIUM CARBONATE [Concomitant]
  4. COLECALCIFEROL (COLECALCIFEROL) [Concomitant]
  5. DIHYDROCODEINE BITARTRATE INJ [Concomitant]
  6. OMEPRAZOLE [Concomitant]
  7. PARACETAMOL (PARACETAMOL) [Concomitant]
  8. PYRIDOSTIGMINE (PYRIDOSTIGMINE) [Concomitant]

REACTIONS (1)
  - THROAT TIGHTNESS [None]
